FAERS Safety Report 20312457 (Version 1)
Quarter: 2022Q1

REPORT INFORMATION
  Report Type: Spontaneous
  Country: US (occurrence: None)
  Receive Date: 20220107
  Receipt Date: 20220107
  Transmission Date: 20220423
  Serious: Yes (Death)
  Sender: FDA-Public Use
  Company Number: None

PATIENT
  Age: 87 Year
  Sex: Female

DRUGS (2)
  1. RETACRIT [Suspect]
     Active Substance: EPOETIN ALFA-EPBX
     Indication: Prolonged labour
     Dosage: OTHER QUANTITY : 40000 UNIT/ML;?FREQUENCY : WEEKLY;?OTHER ROUTE : INJECTION;?
     Route: 050
     Dates: start: 20201104
  2. RETACRIT [Suspect]
     Active Substance: EPOETIN ALFA-EPBX
     Dosage: OTHER QUANTITY : 10000-20000 UNIT;?FREQUENCY : WEEKLY;?
     Route: 058

REACTIONS (1)
  - Death [None]

NARRATIVE: CASE EVENT DATE: 20211215
